FAERS Safety Report 8006339-5 (Version None)
Quarter: 2011Q4

REPORT INFORMATION
  Report Type: 
  Country: None (occurrence: None)
  Receive Date: 20111226
  Receipt Date: 20111221
  Transmission Date: 20120403
  Serious: Yes (Death)
  Sender: FDA-Public Use
  Company Number: PHEH2011US012379

PATIENT
  Age: 81 Year
  Sex: Male
  Weight: 92.063 kg

DRUGS (1)
  1. GLEEVEC [Suspect]
     Indication: LEUKAEMIA
     Dosage: 300 MG, QD
     Route: 048
     Dates: start: 20061223

REACTIONS (1)
  - DEATH [None]
